FAERS Safety Report 26098780 (Version 1)
Quarter: 2025Q4

REPORT INFORMATION
  Report Type: Spontaneous
  Country: EU (occurrence: EU)
  Receive Date: 20251127
  Receipt Date: 20251127
  Transmission Date: 20260117
  Serious: Yes (Life-Threatening, Hospitalization, Other)
  Sender: ALKEM
  Company Number: EU-ALKEM LABORATORIES LIMITED-DE-ALKEM-2025-05057

PATIENT
  Age: 59 Year
  Sex: Male

DRUGS (4)
  1. MYCOPHENOLATE MOFETIL [Suspect]
     Active Substance: MYCOPHENOLATE MOFETIL
     Indication: Renal transplant
     Dosage: UNK
     Route: 065
  2. TACROLIMUS [Suspect]
     Active Substance: TACROLIMUS
     Indication: Renal transplant
     Dosage: UNK
     Route: 065
  3. BASILIXIMAB [Suspect]
     Active Substance: BASILIXIMAB
     Indication: Renal transplant
     Dosage: UNK
     Route: 065
  4. PREDNISOLONE [Suspect]
     Active Substance: PREDNISOLONE
     Indication: Renal transplant
     Dosage: UNK
     Route: 065

REACTIONS (11)
  - Pneumonia mycoplasmal [Unknown]
  - Pneumonia [Unknown]
  - Epstein-Barr viraemia [Unknown]
  - Pseudomonas infection [Unknown]
  - Urinary tract infection pseudomonal [Unknown]
  - COVID-19 [Unknown]
  - Candida infection [Unknown]
  - Enterobacter infection [Unknown]
  - Urinary tract infection bacterial [Unknown]
  - Urinary tract candidiasis [Unknown]
  - Renal transplant failure [Unknown]

NARRATIVE: CASE EVENT DATE: 20230301
